FAERS Safety Report 4565079-5 (Version None)
Quarter: 2005Q1

REPORT INFORMATION
  Report Type: 
  Country: None (occurrence: None)
  Receive Date: 20050126
  Receipt Date: 20050117
  Transmission Date: 20050727
  Serious: Yes (Hospitalization)
  Sender: FDA-Public Use
  Company Number: 2005015980

PATIENT
  Age: 56 Year
  Sex: Female

DRUGS (4)
  1. CELEBREX [Suspect]
     Indication: ARTHRITIS
     Dosage: ORAL
     Route: 048
     Dates: start: 19990101, end: 20020201
  2. INSULIN [Suspect]
     Indication: DIABETES MELLITUS
  3. METFORMIN HCL [Concomitant]
  4. INSULIN LISPRO (INSULIN LISPRO) [Concomitant]

REACTIONS (8)
  - ABDOMINAL PAIN UPPER [None]
  - CHEST PAIN [None]
  - DIARRHOEA [None]
  - DRUG INTERACTION [None]
  - FEELING HOT [None]
  - FLUSHING [None]
  - PRURITUS [None]
  - VOMITING [None]
